FAERS Safety Report 15215362 (Version 1)
Quarter: 2018Q3

REPORT INFORMATION
  Report Type: Spontaneous
  Country: GB (occurrence: GB)
  Receive Date: 20180730
  Receipt Date: 20180730
  Transmission Date: 20181010
  Serious: Yes (Other)
  Sender: FDA-Public Use
  Company Number: GB-LINDE-GB-LHC-2018181

PATIENT
  Age: 16 Year
  Sex: Male

DRUGS (1)
  1. NITROUS OXIDE (GENERIC) [Suspect]
     Active Substance: NITROUS OXIDE
     Indication: PRODUCT USED FOR UNKNOWN INDICATION
     Route: 065

REACTIONS (4)
  - Laryngospasm [Recovered/Resolved]
  - Ventricular dysfunction [Unknown]
  - Pulmonary oedema [Recovered/Resolved]
  - Hypoxia [Unknown]
